FAERS Safety Report 18035963 (Version 2)
Quarter: 2022Q4

REPORT INFORMATION
  Report Type: Spontaneous
  Country: FR (occurrence: FR)
  Receive Date: 20200717
  Receipt Date: 20221217
  Transmission Date: 20230113
  Serious: Yes (Other)
  Sender: FDA-Public Use
  Company Number: FR-JNJFOC-20200712119

PATIENT
  Age: 79 Year
  Sex: Female

DRUGS (5)
  1. MELPHALAN [Suspect]
     Active Substance: MELPHALAN
     Indication: Plasma cell myeloma
     Dosage: 56 MILLIGRAM, EVERY WEEK (1 WEEK/CYCLE)
     Route: 065
     Dates: end: 20190108
  2. MELPHALAN [Suspect]
     Active Substance: MELPHALAN
     Dosage: 14 MILLIGRAM(1 WEEK/CYCLE )
     Route: 065
     Dates: end: 20190108
  3. PREDNISONE [Suspect]
     Active Substance: PREDNISONE
     Indication: Plasma cell myeloma
     Dosage: 360 MILLIGRAM, EVERY WEEK (1 WEEK PER CYCLE)
     Route: 065
     Dates: end: 20190108
  4. PREDNISONE [Suspect]
     Active Substance: PREDNISONE
     Dosage: 90MILLIGRAM, EVERY WEEK (1 WEEK PER CYCLE)
     Route: 065
     Dates: end: 20190108
  5. VELCADE [Suspect]
     Active Substance: BORTEZOMIB
     Indication: Plasma cell myeloma
     Dosage: 2 MILLIGRAM, EVERY WEEK (4 WEEKS/CYCLE)
     Route: 065
     Dates: end: 20190108

REACTIONS (1)
  - Arrhythmia [Unknown]

NARRATIVE: CASE EVENT DATE: 20190103
